FAERS Safety Report 13425682 (Version 1)
Quarter: 2017Q2

REPORT INFORMATION
  Report Type: Spontaneous
  Country: US (occurrence: US)
  Receive Date: 20170411
  Receipt Date: 20170411
  Transmission Date: 20170830
  Serious: No
  Sender: FDA-Public Use
  Company Number: US-ASTRAZENECA-2017SE34118

PATIENT
  Age: 16 Year
  Sex: Male

DRUGS (3)
  1. ESOMEPRAZOLE MAGNESIUM. [Suspect]
     Active Substance: ESOMEPRAZOLE MAGNESIUM
     Indication: EOSINOPHILIC OESOPHAGITIS
     Dosage: GENERIC
     Route: 065
  2. ESOMEPRAZOLE MAGNESIUM. [Suspect]
     Active Substance: ESOMEPRAZOLE MAGNESIUM
     Indication: EOSINOPHILIC OESOPHAGITIS
     Dosage: 40MG
     Route: 048
     Dates: start: 201703
  3. NEXIUM 24HR [Suspect]
     Active Substance: ESOMEPRAZOLE MAGNESIUM
     Dosage: 20MG
     Route: 048

REACTIONS (2)
  - Condition aggravated [Unknown]
  - Drug ineffective [Unknown]
